FAERS Safety Report 6474600-1 (Version None)
Quarter: 2009Q4

REPORT INFORMATION
  Report Type: 
  Country: None (occurrence: None)
  Receive Date: 20091204
  Receipt Date: 20090212
  Transmission Date: 20100525
  Serious: Yes (Hospitalization)
  Sender: FDA-Public Use
  Company Number: US-ELI_LILLY_AND_COMPANY-US200901002712

PATIENT
  Sex: Male
  Weight: 132.34 kg

DRUGS (15)
  1. EXENATIDE [Suspect]
     Indication: DIABETES MELLITUS
     Dosage: 5 UG, 2/D
     Route: 058
     Dates: start: 20081205
  2. ALPRAZOLAM [Concomitant]
     Indication: ANXIETY
     Dates: start: 20080409
  3. AMITRIPTYLINE [Concomitant]
     Indication: NEUROPATHY PERIPHERAL
     Dates: start: 20080409
  4. ASPIRIN [Concomitant]
     Indication: CORONARY ARTERY DISEASE
     Dates: start: 20080409
  5. FISH OIL [Concomitant]
     Indication: CORONARY ARTERY DISEASE
     Dates: start: 20080409
  6. DULOXETINE HYDROCHLORIDE [Concomitant]
     Indication: DEPRESSION
     Dates: start: 20080409
  7. GLIPIZIDE [Concomitant]
     Indication: TYPE 2 DIABETES MELLITUS
     Dates: start: 20080312
  8. LISINOPRIL [Concomitant]
     Indication: HYPERTENSION
     Dates: start: 20080409
  9. METFORMIN HCL [Concomitant]
     Indication: TYPE 2 DIABETES MELLITUS
     Dates: start: 20080312
  10. METOPROLOL TARTRATE [Concomitant]
     Indication: CORONARY ARTERY DISEASE
     Dates: start: 20080409
  11. NITROSTAT [Concomitant]
     Indication: CORONARY ARTERY DISEASE
     Dates: start: 20081211
  12. PROTONIX [Concomitant]
     Indication: GASTROOESOPHAGEAL REFLUX DISEASE
     Dates: start: 20080409
  13. PLAVIX [Concomitant]
     Indication: CORONARY ARTERY DISEASE
     Dates: start: 20081211
  14. LIPITOR [Concomitant]
     Indication: HYPERLIPIDAEMIA
     Dates: start: 20090113
  15. AMBIEN [Concomitant]
     Indication: INSOMNIA
     Dates: start: 20090113

REACTIONS (1)
  - NON-CARDIAC CHEST PAIN [None]
